FAERS Safety Report 25902431 (Version 1)
Quarter: 2025Q4

REPORT INFORMATION
  Report Type: Spontaneous
  Country: US (occurrence: US)
  Receive Date: 20251009
  Receipt Date: 20251009
  Transmission Date: 20260118
  Serious: Yes (Other)
  Sender: NOVARTIS
  Company Number: US-002147023-NVSC2025US155288

PATIENT
  Sex: Female

DRUGS (2)
  1. IPTACOPAN [Suspect]
     Active Substance: IPTACOPAN
     Indication: IgA nephropathy
     Dosage: 200 MG, BID
     Route: 048
     Dates: start: 20250714
  2. IPTACOPAN [Suspect]
     Active Substance: IPTACOPAN
     Dosage: UNK
     Route: 065
     Dates: start: 20250730

REACTIONS (3)
  - Erythema multiforme [Not Recovered/Not Resolved]
  - Rash pruritic [Not Recovered/Not Resolved]
  - Papule [Not Recovered/Not Resolved]

NARRATIVE: CASE EVENT DATE: 20250714
